FAERS Safety Report 23356193 (Version 2)
Quarter: 2024Q1

REPORT INFORMATION
  Report Type: Spontaneous
  Country: NL (occurrence: NL)
  Receive Date: 20240102
  Receipt Date: 20240131
  Transmission Date: 20240410
  Serious: Yes (Life-Threatening, Hospitalization, Other)
  Sender: FDA-Public Use
  Company Number: None

PATIENT
  Age: 30 Year
  Sex: Female
  Weight: 93 kg

DRUGS (2)
  1. CITALOPRAM [Suspect]
     Active Substance: CITALOPRAM HYDROBROMIDE
     Indication: Depression
     Route: 048
  2. CITALOPRAM [Suspect]
     Active Substance: CITALOPRAM HYDROBROMIDE
     Indication: Depression
     Dosage: 1 PIECE ONCE A DAY
     Route: 048
     Dates: start: 20041001, end: 20071115

REACTIONS (12)
  - Depression [Recovered/Resolved]
  - Injury [Recovering/Resolving]
  - Nerve compression [Recovering/Resolving]
  - Agitation [Recovered/Resolved]
  - Serotonin syndrome [Recovered/Resolved]
  - Abnormal dreams [Recovered/Resolved]
  - Suicidal ideation [Recovered/Resolved]
  - Sinus tachycardia [Recovered/Resolved]
  - Euphoric mood [Recovered/Resolved]
  - Insomnia [Recovered/Resolved]
  - Fatigue [Recovered/Resolved]
  - Product substitution issue [Unknown]
